FAERS Safety Report 22214067 (Version 1)
Quarter: 2023Q2

REPORT INFORMATION
  Report Type: Spontaneous
  Country: US (occurrence: US)
  Receive Date: 20230414
  Receipt Date: 20230414
  Transmission Date: 20230722
  Serious: No
  Sender: FDA-Public Use
  Company Number: US-ALLERGAN-2226807US

PATIENT
  Age: 36 Year
  Sex: Female

DRUGS (5)
  1. LILETTA [Suspect]
     Active Substance: LEVONORGESTREL
     Indication: Endometriosis
     Dosage: 52 MG, SINGLE
     Route: 015
     Dates: start: 202104, end: 202104
  2. LILETTA [Suspect]
     Active Substance: LEVONORGESTREL
     Indication: Heavy menstrual bleeding
  3. COVID-19 VACCINE [Concomitant]
     Indication: COVID-19 immunisation
     Dosage: UNK, SINGLE
     Route: 030
  4. COVID-19 VACCINE [Concomitant]
     Dosage: UNK
     Route: 030
  5. COVID-19 VACCINE [Concomitant]
     Dosage: UNK
     Route: 030

REACTIONS (5)
  - Pruritus [Not Recovered/Not Resolved]
  - Dysuria [Not Recovered/Not Resolved]
  - Off label use [Unknown]
  - Vaginal discharge [Not Recovered/Not Resolved]
  - Fungal infection [Not Recovered/Not Resolved]

NARRATIVE: CASE EVENT DATE: 20220101
